FAERS Safety Report 12817596 (Version 1)
Quarter: 2016Q4

REPORT INFORMATION
  Report Type: Spontaneous
  Country: MA (occurrence: MA)
  Receive Date: 20161006
  Receipt Date: 20161006
  Transmission Date: 20170207
  Serious: Yes (Hospitalization)
  Sender: FDA-Public Use
  Company Number: MA-ACCORD-044601

PATIENT
  Age: 26 Year
  Sex: Female

DRUGS (1)
  1. CLOZAPINE. [Suspect]
     Active Substance: CLOZAPINE
     Indication: SCHIZOPHRENIA

REACTIONS (8)
  - Weight decreased [Recovered/Resolved]
  - Catatonia [Recovered/Resolved]
  - Waxy flexibility [Recovered/Resolved]
  - Withdrawal syndrome [Recovered/Resolved]
  - Mutism [Recovered/Resolved]
  - Stupor [Recovered/Resolved]
  - Negativism [Recovered/Resolved]
  - Dehydration [Recovered/Resolved]
